FAERS Safety Report 8714938 (Version 2)
Quarter: 2013Q1

REPORT INFORMATION
  Report Type: Report from Study
  Country: GR (occurrence: GR)
  Receive Date: 20120809
  Receipt Date: 20130117
  Transmission Date: 20140127
  Serious: Yes (Death, Hospitalization)
  Sender: FDA-Public Use
  Company Number: GR-PFIZER INC-2012188973

PATIENT
  Sex: Male

DRUGS (3)
  1. CISPLATIN [Suspect]
     Indication: TESTIS CANCER
     Dosage: 50 MG/M2, DAYS 1 AND 2
     Route: 042
  2. ETOPOSIDE [Suspect]
     Indication: TESTIS CANCER
     Dosage: 165 MG/M2, DAYS 1-3
     Route: 042
  3. BLEOMYCIN [Suspect]
     Indication: TESTIS CANCER
     Dosage: 30 MG, FOR 3 DAYS
     Route: 042

REACTIONS (7)
  - Pulmonary toxicity [Fatal]
  - Bone marrow toxicity [Fatal]
  - Pancytopenia [Fatal]
  - Haemoptysis [Unknown]
  - Dyspnoea [Unknown]
  - Pyrexia [Unknown]
  - Haemorrhage [Unknown]
